FAERS Safety Report 6367896-8 (Version None)
Quarter: 2009Q3

REPORT INFORMATION
  Report Type: 
  Country: None (occurrence: None)
  Receive Date: 20090922
  Receipt Date: 20080528
  Transmission Date: 20100115
  Serious: Yes (Hospitalization)
  Sender: FDA-Public Use
  Company Number: US-ASTRAZENECA-2007UW24896

PATIENT
  Age: 47 Year
  Sex: Female

DRUGS (10)
  1. SEROQUEL [Suspect]
     Indication: DEPRESSION
     Dosage: 25-100 MG
     Route: 048
     Dates: start: 20010317
  2. SEROQUEL [Suspect]
     Route: 048
     Dates: start: 20020101, end: 20030101
  3. PROZAC [Concomitant]
  4. AMITRIPTYLINE [Concomitant]
  5. NEURONTIN [Concomitant]
     Dates: start: 20010317
  6. GLYBURIDE [Concomitant]
     Dates: start: 20010507
  7. HYDROCODONE BITARTRATE AND ACETAMINOPHEN [Concomitant]
     Dosage: 5/500
     Dates: start: 20010711
  8. PREDNISONE [Concomitant]
     Dates: start: 20010711
  9. GLUCOPHAGE [Concomitant]
     Dates: start: 20011102
  10. LEXAPRO [Concomitant]
     Dates: start: 20030207

REACTIONS (3)
  - CHEST PAIN [None]
  - DIABETES MELLITUS [None]
  - KNEE ARTHROPLASTY [None]
